FAERS Safety Report 6774214-X (Version None)
Quarter: 2010Q2

REPORT INFORMATION
  Report Type: 
  Country: None (occurrence: None)
  Receive Date: 20100617
  Receipt Date: 20100609
  Transmission Date: 20101027
  Serious: Yes (Death)
  Sender: FDA-Public Use
  Company Number: CH-BAYER-201028056GPV

PATIENT

DRUGS (5)
  1. FLUDARABINE [Suspect]
     Indication: STEM CELL TRANSPLANT
     Dosage: DAY - 8 TO -3
  2. BUSULFEX [Suspect]
     Indication: STEM CELL TRANSPLANT
     Dosage: DAY - 4 TO - 2
  3. ANTITHYMOCYTE GLOBULIN FRESENIUS [Suspect]
     Indication: STEM CELL TRANSPLANT
  4. CYCLOSPORINE [Concomitant]
     Indication: PROPHYLAXIS AGAINST GRAFT VERSUS HOST DISEASE
  5. MYCOPHENOLATE MOFETIL [Concomitant]
     Indication: PROPHYLAXIS AGAINST GRAFT VERSUS HOST DISEASE

REACTIONS (2)
  - CYTOMEGALOVIRUS INFECTION [None]
  - RESPIRATORY FAILURE [None]
